FAERS Safety Report 13666301 (Version 1)
Quarter: 2017Q2

REPORT INFORMATION
  Report Type: Spontaneous
  Country: US (occurrence: US)
  Receive Date: 20170619
  Receipt Date: 20170619
  Transmission Date: 20170830
  Serious: No
  Sender: FDA-Public Use
  Company Number: US-ROCHE-1301974

PATIENT
  Sex: Female

DRUGS (1)
  1. XELODA [Suspect]
     Active Substance: CAPECITABINE
     Indication: BILE DUCT CANCER
     Dosage: FOR 14 DAYS WITH 7 DAYS OFF
     Route: 065

REACTIONS (3)
  - Blood pressure increased [Recovered/Resolved]
  - Paraesthesia [Unknown]
  - Neuropathy peripheral [Unknown]
